FAERS Safety Report 18948880 (Version 1)
Quarter: 2021Q1

REPORT INFORMATION
  Report Type: Report from Study
  Country: CO (occurrence: CO)
  Receive Date: 20210227
  Receipt Date: 20210227
  Transmission Date: 20210420
  Serious: Yes (Other)
  Sender: FDA-Public Use
  Company Number: NVSC2021CO037170

PATIENT
  Sex: Female
  Weight: 89 kg

DRUGS (3)
  1. NIFEDIPINE. [Concomitant]
     Active Substance: NIFEDIPINE
     Indication: HYPERTENSION
     Dosage: 30 MG, Q24H (STARTED APPROXIMATELY 29 YEARS AGO)
     Route: 048
  2. LOSARTAN. [Suspect]
     Active Substance: LOSARTAN
     Indication: HYPERTENSION
     Dosage: 50 MG, Q12H (STARTED APPROXIMATELY 29 YEARS AGO)
     Route: 048
  3. HIDROCLOROTIAZIDA [Concomitant]
     Active Substance: HYDROCHLOROTHIAZIDE
     Indication: PRODUCT USED FOR UNKNOWN INDICATION
     Dosage: 25 MG, Q24H
     Route: 048

REACTIONS (7)
  - Breast cancer [Unknown]
  - Glaucoma [Unknown]
  - Metastases to lung [Unknown]
  - Breast cancer metastatic [Unknown]
  - Gastritis [Unknown]
  - Off label use [Unknown]
  - Metastases to bone [Unknown]
